FAERS Safety Report 7437895-3 (Version None)
Quarter: 2011Q2

REPORT INFORMATION
  Report Type: 
  Country: None (occurrence: None)
  Receive Date: 20110426
  Receipt Date: 20110420
  Transmission Date: 20111010
  Serious: Yes (Hospitalization)
  Sender: FDA-Public Use
  Company Number: B0712415A

PATIENT
  Sex: Male

DRUGS (3)
  1. ROSIGLITAZONE MALEATE [Suspect]
     Route: 048
     Dates: start: 20010201
  2. LANOXIN [Concomitant]
  3. ZESTRIL [Concomitant]

REACTIONS (2)
  - CEREBROVASCULAR ACCIDENT [None]
  - CARDIAC FAILURE CONGESTIVE [None]
